FAERS Safety Report 16063230 (Version 1)
Quarter: 2019Q1

REPORT INFORMATION
  Report Type: Spontaneous
  Country: US (occurrence: US)
  Receive Date: 20190312
  Receipt Date: 20190312
  Transmission Date: 20190418
  Serious: No
  Sender: FDA-Public Use
  Company Number: US-PFIZER INC-2019096087

PATIENT
  Sex: Female

DRUGS (2)
  1. LIOTHYRONINE SODIUM. [Suspect]
     Active Substance: LIOTHYRONINE SODIUM
     Dosage: 37.5 UG, DAILY
  2. SYNTHROID [Concomitant]
     Active Substance: LEVOTHYROXINE SODIUM
     Dosage: 88 UG, DAILY

REACTIONS (7)
  - Dyspnoea [Unknown]
  - Muscular weakness [Unknown]
  - Muscle tightness [Unknown]
  - Fatigue [Unknown]
  - Drug ineffective [Unknown]
  - Gait disturbance [Unknown]
  - Pain in extremity [Unknown]
